FAERS Safety Report 8608960-X (Version None)
Quarter: 2012Q3

REPORT INFORMATION
  Report Type: 
  Country: None (occurrence: None)
  Receive Date: 20120821
  Receipt Date: 20081215
  Transmission Date: 20120928
  Serious: Yes (Other)
  Sender: FDA-Public Use
  Company Number: US-GLAXOSMITHKLINE-A0760444A

PATIENT
  Age: 63 Year
  Sex: Female
  Weight: 59.1 kg

DRUGS (20)
  1. ALBUTEROL SULFATE [Concomitant]
  2. ZANTAC [Concomitant]
  3. VITAMIN B-12 [Concomitant]
  4. GLIMEPIRIDE [Concomitant]
  5. CALCIUM CARBONATE [Concomitant]
  6. ATACAND [Concomitant]
  7. PROMETHAZINE HYDROCHLORIDE [Concomitant]
  8. UNSPECIFIED MEDICATION [Concomitant]
  9. MAGNESIUM [Concomitant]
  10. METHOCARBAMOL [Concomitant]
  11. MULTI-VITAMIN [Concomitant]
  12. NYSTATIN [Concomitant]
  13. NIACIN [Concomitant]
  14. VENTOLIN HFA [Suspect]
     Dosage: 90MCG UNKNOWN
     Route: 055
     Dates: start: 20081215
  15. KLONOPIN [Concomitant]
  16. FLUTICASONE PROPIONATE [Suspect]
     Indication: CHRONIC OBSTRUCTIVE PULMONARY DISEASE
     Dosage: 1PUFF TWICE PER DAY
     Route: 055
  17. CRESTOR [Concomitant]
  18. EPINEPHRINE [Concomitant]
  19. NIASPAN [Concomitant]
  20. SYNTHROID [Concomitant]

REACTIONS (3)
  - CATARACT [None]
  - DRUG INEFFECTIVE [None]
  - VISUAL IMPAIRMENT [None]
